FAERS Safety Report 10218887 (Version 1)
Quarter: 2014Q2

REPORT INFORMATION
  Report Type: Spontaneous
  Country: US (occurrence: None)
  Receive Date: 20140604
  Receipt Date: 20140604
  Transmission Date: 20141212
  Serious: Yes (Other)
  Sender: FDA-Public Use
  Company Number: None

PATIENT
  Age: 71 Year
  Sex: Male
  Weight: 74.84 kg

DRUGS (2)
  1. ROBITUSSIN DM [Suspect]
     Indication: COUGH
     Route: 048
     Dates: start: 20140529
  2. ROBITUSSIN DM [Suspect]
     Indication: RESPIRATORY DISORDER
     Route: 048
     Dates: start: 20140529

REACTIONS (2)
  - Product quality issue [None]
  - No adverse event [None]
